FAERS Safety Report 7878640-7 (Version None)
Quarter: 2011Q4

REPORT INFORMATION
  Report Type: 
  Country: None (occurrence: None)
  Receive Date: 20111101
  Receipt Date: 20111020
  Transmission Date: 20120403
  Serious: Yes (Hospitalization)
  Sender: FDA-Public Use
  Company Number: US-CUBIST-2011S1000703

PATIENT
  Age: 70 Year
  Sex: Female
  Weight: 104 kg

DRUGS (2)
  1. VANCOMYCIN HCL [Suspect]
     Indication: SKIN INFECTION
     Dosage: DOSE UNIT:U UNKNOWN
     Route: 065
     Dates: start: 20110607, end: 20110612
  2. VANCOMYCIN HCL [Suspect]
     Indication: STAPHYLOCOCCAL INFECTION
     Dosage: DOSE UNIT:U UNKNOWN
     Route: 065
     Dates: start: 20110607, end: 20110612

REACTIONS (4)
  - FUNGAL SKIN INFECTION [None]
  - HAEMATURIA [None]
  - DRUG LEVEL INCREASED [None]
  - ASTHENIA [None]
